FAERS Safety Report 22011127 (Version 2)
Quarter: 2023Q1

REPORT INFORMATION
  Report Type: Spontaneous
  Country: HK (occurrence: HK)
  Receive Date: 20230220
  Receipt Date: 20230222
  Transmission Date: 20230418
  Serious: Yes (Hospitalization)
  Sender: FDA-Public Use
  Company Number: HK-ELI_LILLY_AND_COMPANY-HK202302005559

PATIENT

DRUGS (2)
  1. TRULICITY [Suspect]
     Active Substance: DULAGLUTIDE
     Indication: Glycosylated haemoglobin increased
     Dosage: UNK UNK, UNKNOWN
     Route: 065
  2. JARDIANCE [Suspect]
     Active Substance: EMPAGLIFLOZIN
     Indication: Glycosylated haemoglobin increased
     Dosage: UNK UNK, UNKNOWN
     Route: 065

REACTIONS (3)
  - Diabetic ketoacidosis [Unknown]
  - Nausea [Unknown]
  - Vomiting [Unknown]
